FAERS Safety Report 18165164 (Version 1)
Quarter: 2020Q3

REPORT INFORMATION
  Report Type: Spontaneous
  Country: CA (occurrence: CA)
  Receive Date: 20200818
  Receipt Date: 20200818
  Transmission Date: 20201103
  Serious: Yes (Life-Threatening, Hospitalization, Disabling, Other)
  Sender: FDA-Public Use
  Company Number: CA-DSJP-DSU-2020-123196

PATIENT
  Age: 70 Year
  Sex: Female

DRUGS (2)
  1. OLMETEC PLUS [Suspect]
     Active Substance: HYDROCHLOROTHIAZIDE\OLMESARTAN MEDOXOMIL
     Indication: HYPERTENSION
     Dosage: 1 DF, 1 EVERY 1 DAYS
     Route: 065
  2. PANTOLOC                           /01263201/ [Concomitant]
     Active Substance: PANTOPRAZOLE SODIUM
     Indication: PRODUCT USED FOR UNKNOWN INDICATION
     Dosage: UNK
     Route: 065

REACTIONS (6)
  - Haemorrhoidal haemorrhage [Unknown]
  - Colitis [Unknown]
  - Abdominal pain [Unknown]
  - Metabolic acidosis [Unknown]
  - Weight decreased [Unknown]
  - Diarrhoea [Unknown]
